FAERS Safety Report 7427863-X (Version None)
Quarter: 2011Q2

REPORT INFORMATION
  Report Type: 
  Country: None (occurrence: None)
  Receive Date: 20110421
  Receipt Date: 20110406
  Transmission Date: 20111010
  Serious: Yes (Hospitalization)
  Sender: FDA-Public Use
  Company Number: GB-CELGENEUS-167-21880-11040236

PATIENT

DRUGS (2)
  1. REVLIMID [Suspect]
     Route: 048
     Dates: start: 20110315
  2. REVLIMID [Suspect]
     Route: 048
     Dates: start: 20110120

REACTIONS (1)
  - CARDIAC PACEMAKER INSERTION [None]
